FAERS Safety Report 16137859 (Version 1)
Quarter: 2019Q2

REPORT INFORMATION
  Report Type: Spontaneous
  Country: JP (occurrence: JP)
  Receive Date: 20190401
  Receipt Date: 20190401
  Transmission Date: 20190711
  Serious: Yes (Other)
  Sender: FDA-Public Use
  Company Number: JP-GLAXOSMITHKLINE-JP2019JPN054110

PATIENT
  Sex: Male

DRUGS (26)
  1. ZOVIRAX [Suspect]
     Active Substance: ACYCLOVIR
     Indication: VARICELLA ZOSTER VIRUS INFECTION
     Dosage: 1500 MG, 1D
     Route: 064
  2. PREDNISOLONE. [Suspect]
     Active Substance: PREDNISOLONE
     Indication: VARICELLA ZOSTER VIRUS INFECTION
     Dosage: 25 MG, UNK
     Route: 064
  3. PREDNISOLONE. [Suspect]
     Active Substance: PREDNISOLONE
     Dosage: 10 MG, UNK
     Route: 064
  4. METHYLPREDNISOLONE SODIUM SUCCINATE. [Suspect]
     Active Substance: METHYLPREDNISOLONE SODIUM SUCCINATE
     Indication: VARICELLA ZOSTER VIRUS INFECTION
  5. PREDNISOLONE SODIUM SUCCINATE [Suspect]
     Active Substance: PREDNISOLONE SODIUM SUCCINATE
     Dosage: 37.5 MG, UNK
     Route: 041
  6. ASPIRIN ENTERIC-COATED TABLET [Concomitant]
     Indication: NECROTISING RETINITIS
     Dosage: 100 MG, QD
     Route: 064
  7. ACICLOVIR [Suspect]
     Active Substance: ACYCLOVIR
     Indication: NECROTISING RETINITIS
     Route: 064
  8. ACETAMINOPHEN. [Concomitant]
     Active Substance: ACETAMINOPHEN
     Indication: PYREXIA
     Dosage: UNK
     Route: 064
  9. PREDNISOLONE. [Suspect]
     Active Substance: PREDNISOLONE
     Dosage: 15 MG, QD
     Route: 064
  10. CEFMENOXIME HYDROCHLORIDE [Concomitant]
     Active Substance: CEFMENOXIME HYDROCHLORIDE
     Indication: INFECTIVE UVEITIS
     Dosage: UNK
     Route: 064
  11. BETAMETHASONE SODIUM PHOSPHATE [Concomitant]
     Active Substance: BETAMETHASONE SODIUM PHOSPHATE
     Indication: NECROTISING RETINITIS
  12. FAMOTIDINE. [Concomitant]
     Active Substance: FAMOTIDINE
     Indication: VARICELLA ZOSTER VIRUS INFECTION
  13. PREDNISOLONE. [Suspect]
     Active Substance: PREDNISOLONE
     Dosage: 20 MG, 1D
     Route: 064
  14. BETAMETHASONE SODIUM PHOSPHATE [Concomitant]
     Active Substance: BETAMETHASONE SODIUM PHOSPHATE
     Indication: VARICELLA ZOSTER VIRUS INFECTION
  15. ASPIRIN ENTERIC-COATED TABLET [Concomitant]
     Indication: VARICELLA ZOSTER VIRUS INFECTION
  16. ZOVIRAX [Suspect]
     Active Substance: ACYCLOVIR
     Indication: NECROTISING RETINITIS
  17. ZOVIRAX [Suspect]
     Active Substance: ACYCLOVIR
     Indication: VARICELLA ZOSTER VIRUS INFECTION
     Dosage: 1000 MG, TID
     Route: 064
  18. ACICLOVIR [Suspect]
     Active Substance: ACYCLOVIR
     Indication: VARICELLA ZOSTER VIRUS INFECTION
  19. BETAMETHASONE SODIUM PHOSPHATE [Concomitant]
     Active Substance: BETAMETHASONE SODIUM PHOSPHATE
     Indication: INFECTIVE UVEITIS
     Dosage: UNK
     Route: 064
  20. ZOVIRAX [Suspect]
     Active Substance: ACYCLOVIR
     Indication: NECROTISING RETINITIS
  21. PREDNISOLONE. [Suspect]
     Active Substance: PREDNISOLONE
     Indication: NECROTISING RETINITIS
     Dosage: 12.5 MG, UNK
     Route: 064
  22. PURIFIED SODIUM HYALURONATE [Concomitant]
     Indication: INFECTIVE UVEITIS
     Dosage: UNK
     Route: 064
  23. METHYLPREDNISOLONE SODIUM SUCCINATE. [Suspect]
     Active Substance: METHYLPREDNISOLONE SODIUM SUCCINATE
     Indication: NECROTISING RETINITIS
     Dosage: 50 MG, 1D
     Route: 064
  24. PREDNISOLONE SODIUM SUCCINATE [Suspect]
     Active Substance: PREDNISOLONE SODIUM SUCCINATE
     Indication: NECROTISING RETINITIS
     Dosage: 60 MG, UNK
     Route: 064
  25. PREDNISOLONE SODIUM SUCCINATE [Suspect]
     Active Substance: PREDNISOLONE SODIUM SUCCINATE
     Indication: VARICELLA ZOSTER VIRUS INFECTION
     Dosage: 50 MG, UNK
     Route: 041
  26. FAMOTIDINE. [Concomitant]
     Active Substance: FAMOTIDINE
     Indication: NECROTISING RETINITIS
     Dosage: 20 MG, BID
     Route: 064

REACTIONS (4)
  - Foetal growth restriction [Unknown]
  - Foetal exposure during pregnancy [Unknown]
  - Umbilical hernia [Unknown]
  - Jaundice neonatal [Unknown]
